FAERS Safety Report 22156763 (Version 1)
Quarter: 2023Q1

REPORT INFORMATION
  Report Type: Spontaneous
  Country: RS (occurrence: RS)
  Receive Date: 20230330
  Receipt Date: 20230330
  Transmission Date: 20230418
  Serious: Yes (Hospitalization)
  Sender: FDA-Public Use
  Company Number: RS-PFIZER INC-PV202300057132

PATIENT
  Age: 49 Year
  Sex: Male

DRUGS (5)
  1. METHOTREXATE SODIUM [Suspect]
     Active Substance: METHOTREXATE SODIUM
     Indication: Rheumatoid arthritis
     Dosage: 15 MG, WEEKLY
     Dates: start: 201610
  2. METHOTREXATE SODIUM [Suspect]
     Active Substance: METHOTREXATE SODIUM
     Dosage: 17.5 MG, WEEKLY
     Dates: start: 201702, end: 201812
  3. NIFEDIPINE [Suspect]
     Active Substance: NIFEDIPINE
     Indication: Rheumatoid arthritis
     Dosage: 250 MG
     Dates: start: 201702
  4. NIFEDIPINE [Suspect]
     Active Substance: NIFEDIPINE
     Dosage: 250 MG, DAILY
     Dates: start: 201707
  5. ETANERCEPT [Concomitant]
     Active Substance: ETANERCEPT
     Indication: Rheumatoid arthritis
     Dosage: 50 MG, WEEKLY
     Route: 058
     Dates: start: 201707

REACTIONS (3)
  - Rheumatoid arthritis [Recovered/Resolved]
  - Disease progression [Recovered/Resolved]
  - Transaminases increased [Recovered/Resolved]

NARRATIVE: CASE EVENT DATE: 20170101
